FAERS Safety Report 5848424-X (Version None)
Quarter: 2008Q3

REPORT INFORMATION
  Report Type: 
  Country: None (occurrence: None)
  Receive Date: 20080818
  Receipt Date: 20080804
  Transmission Date: 20090109
  Serious: Yes (Other)
  Sender: FDA-Public Use
  Company Number: RO-ROCHE-579833

PATIENT
  Age: 40 Year
  Sex: Female

DRUGS (4)
  1. RIBAVIRIN [Suspect]
     Indication: HEPATITIS C
     Dosage: FREQ REPORTED AS DAILY
     Route: 065
  2. RIBAVIRIN [Suspect]
     Dosage: FREQUENCY REPORTED AS DAILY
     Route: 065
  3. PEGASYS [Suspect]
     Indication: HEPATITIS C
     Dosage: FREQUENCY REPORTED AS WEEKLY
     Route: 065
  4. PEG-INTERFERON ALFA NOS [Suspect]
     Indication: HEPATITIS C
     Dosage: DRUG NAME REPORTED AS IFN ALPHA 2B
     Route: 065

REACTIONS (2)
  - ERYTHEMA NODOSUM [None]
  - RHEUMATOID ARTHRITIS [None]
